FAERS Safety Report 8856054 (Version 1)
Quarter: 2012Q4

REPORT INFORMATION
  Report Type: Spontaneous
  Country: US (occurrence: None)
  Receive Date: 20121022
  Receipt Date: 20121022
  Transmission Date: 20130627
  Serious: Yes (Life-Threatening, Hospitalization, Disabling)
  Sender: FDA-Public Use
  Company Number: None

PATIENT
  Age: 36 Year
  Sex: Female
  Weight: 107.05 kg

DRUGS (1)
  1. ADDERALL [Suspect]
     Indication: ADHD
     Dates: start: 20080101, end: 20110323

REACTIONS (2)
  - Myocardial infarction [None]
  - Coronary artery thrombosis [None]
